FAERS Safety Report 19979318 (Version 1)
Quarter: 2021Q4

REPORT INFORMATION
  Report Type: Spontaneous
  Country: US (occurrence: US)
  Receive Date: 20211021
  Receipt Date: 20211021
  Transmission Date: 20220303
  Serious: Yes (Other)
  Sender: FDA-Public Use
  Company Number: None

PATIENT
  Age: 64 Year
  Sex: Female
  Weight: 51.3 kg

DRUGS (8)
  1. OCREVUS [Suspect]
     Active Substance: OCRELIZUMAB
     Indication: Multiple sclerosis
     Dates: start: 20190919
  2. MODAFINIL [Concomitant]
     Active Substance: MODAFINIL
     Dates: start: 20210910
  3. Zolpidem 5 mg SL tab qd [Concomitant]
     Dates: start: 20200304
  4. EVENITY [Concomitant]
     Active Substance: ROMOSOZUMAB-AQQG
  5. Calcium citrate 250 mg [Concomitant]
  6. Cholecalciferol, Vitamin D3 [Concomitant]
  7. Centrum oral multivitamin [Concomitant]
     Dates: start: 20070206
  8. VALACYCLOVIR [Concomitant]
     Active Substance: VALACYCLOVIR HYDROCHLORIDE
     Dates: start: 20210929, end: 20211009

REACTIONS (1)
  - Herpes virus infection [None]

NARRATIVE: CASE EVENT DATE: 20210929
